FAERS Safety Report 5108570-5 (Version None)
Quarter: 2006Q3

REPORT INFORMATION
  Report Type: 
  Country: None (occurrence: None)
  Receive Date: 20060919
  Receipt Date: 20060912
  Transmission Date: 20061208
  Serious: Yes (Other)
  Sender: FDA-Public Use
  Company Number: JP-MERCK-0609USA03186

PATIENT
  Age: 55 Year
  Sex: Male

DRUGS (7)
  1. PEPCID [Suspect]
     Route: 051
     Dates: start: 20060824, end: 20060828
  2. ZANTAC [Concomitant]
     Route: 065
     Dates: end: 20060823
  3. ZANTAC [Concomitant]
     Route: 065
     Dates: start: 20060828
  4. [THERAPY UNSPECIFIED] [Concomitant]
     Route: 065
     Dates: end: 20060823
  5. TIENAM [Concomitant]
     Route: 051
     Dates: start: 20060821
  6. [THERAPY UNSPECIFIED] [Concomitant]
     Route: 051
     Dates: start: 20060824, end: 20060828
  7. AMINO ACIDS (UNSPECIFIED) AND CARBOHYDRATES (UNSPECIFIED) AND ELECTROL [Concomitant]
     Route: 051
     Dates: start: 20060824, end: 20060828

REACTIONS (1)
  - STEVENS-JOHNSON SYNDROME [None]
